FAERS Safety Report 17912188 (Version 1)
Quarter: 2020Q2

REPORT INFORMATION
  Report Type: Spontaneous
  Country: GB (occurrence: US)
  Receive Date: 20200618
  Receipt Date: 20200618
  Transmission Date: 20200714
  Serious: No
  Sender: FDA-Public Use
  Company Number: GB-EMERGENT BIOSOLUTIONS,-20000335LT

PATIENT
  Sex: Male

DRUGS (1)
  1. NALOXONE HYDROCHLORIDE. [Suspect]
     Active Substance: NALOXONE HYDROCHLORIDE
     Indication: OVERDOSE
     Route: 065

REACTIONS (1)
  - Eructation [Unknown]
